FAERS Safety Report 11281059 (Version 2)
Quarter: 2015Q3

REPORT INFORMATION
  Report Type: Report from Study
  Country: PR (occurrence: PR)
  Receive Date: 20150717
  Receipt Date: 20150908
  Transmission Date: 20151125
  Serious: Yes (Death)
  Sender: FDA-Public Use
  Company Number: PR-JNJFOC-20150712532

PATIENT

DRUGS (6)
  1. PREZISTA [Suspect]
     Active Substance: DARUNAVIR ETHANOLATE
     Indication: HIV INFECTION
     Dosage: MOTHER?S DOSING
     Route: 064
     Dates: start: 20140114
  2. NORVIR [Suspect]
     Active Substance: RITONAVIR
     Indication: HEPATITIS C
     Dosage: MOTHER?S DOSING
     Route: 064
     Dates: start: 20140114
  3. NORVIR [Suspect]
     Active Substance: RITONAVIR
     Indication: HIV INFECTION
     Dosage: MOTHER?S DOSING
     Route: 064
     Dates: start: 20140114
  4. PREZISTA [Suspect]
     Active Substance: DARUNAVIR ETHANOLATE
     Indication: HEPATITIS C
     Dosage: MOTHER?S DOSING
     Route: 064
     Dates: start: 20140114
  5. EMTRICITABINE W/TENOFOVIR DISOPROXIL FUMARATE [Suspect]
     Active Substance: EMTRICITABINE\TENOFOVIR DISOPROXIL
     Indication: HEPATITIS C
     Dosage: MOTHER?S DOSING
     Route: 064
     Dates: start: 20140327
  6. EMTRICITABINE W/TENOFOVIR DISOPROXIL FUMARATE [Suspect]
     Active Substance: EMTRICITABINE\TENOFOVIR DISOPROXIL
     Indication: HIV INFECTION
     Dosage: MOTHER?S DOSING
     Route: 064
     Dates: start: 20140327

REACTIONS (2)
  - Foetal heart rate abnormal [Fatal]
  - Foetal exposure during pregnancy [Recovered/Resolved]
